FAERS Safety Report 7594450-2 (Version None)
Quarter: 2011Q3

REPORT INFORMATION
  Report Type: 
  Country: None (occurrence: None)
  Receive Date: 20110707
  Receipt Date: 20110707
  Transmission Date: 20111222
  Serious: Yes (Hospitalization, Other)
  Sender: FDA-Public Use
  Company Number: None

PATIENT
  Age: 20 Year
  Sex: Female
  Weight: 645 kg

DRUGS (3)
  1. MACROBID [Suspect]
     Indication: URINARY TRACT INFECTION
     Dosage: UNKNOWN
     Route: 048
     Dates: start: 20100420, end: 20100426
  2. FLAGYL [Interacting]
     Dates: start: 20100420, end: 20100426
  3. AMOXICILLIN [Concomitant]
     Dates: start: 20100426

REACTIONS (1)
  - RHABDOMYOLYSIS [None]
